FAERS Safety Report 20347051 (Version 1)
Quarter: 2022Q1

REPORT INFORMATION
  Report Type: Report from Study
  Country: US (occurrence: US)
  Receive Date: 20220118
  Receipt Date: 20220118
  Transmission Date: 20220424
  Serious: Yes (Hospitalization)
  Sender: FDA-Public Use
  Company Number: US-PFIZER INC-202200022054

PATIENT
  Age: 82 Year
  Sex: Female

DRUGS (2)
  1. PALBOCICLIB [Suspect]
     Active Substance: PALBOCICLIB
     Indication: Mantle cell lymphoma
     Dosage: QD ON DAYS 1-21, CYCLE=28 DAYS
     Route: 048
     Dates: start: 20150908
  2. IBRUTINIB [Suspect]
     Active Substance: IBRUTINIB
     Indication: Mantle cell lymphoma
     Dosage: CYCLE=28 DAYS, QD
     Route: 048
     Dates: start: 20150908

REACTIONS (2)
  - Mental status changes [Recovered/Resolved]
  - Pyrexia [Recovered/Resolved]

NARRATIVE: CASE EVENT DATE: 20190903
